FAERS Safety Report 12600033 (Version 4)
Quarter: 2018Q2

REPORT INFORMATION
  Report Type: Report from Study
  Country: None (occurrence: US)
  Receive Date: 20160727
  Receipt Date: 20180601
  Transmission Date: 20180711
  Serious: Yes (Other)
  Sender: FDA-Public Use
  Company Number: US-ABBVIE-16K-163-1680072-00

PATIENT
  Age: 80 Year
  Sex: Female

DRUGS (1)
  1. HUMIRA [Suspect]
     Active Substance: ADALIMUMAB
     Indication: RHEUMATOID ARTHRITIS
     Route: 058
     Dates: start: 201507

REACTIONS (13)
  - Intervertebral disc protrusion [Unknown]
  - Squamous cell carcinoma of skin [Unknown]
  - Spinal operation [Unknown]
  - Joint range of motion decreased [Unknown]
  - Hypersensitivity [Unknown]
  - Nerve injury [Unknown]
  - Muscle strain [Unknown]
  - Fall [Unknown]
  - Ocular hyperaemia [Unknown]
  - Injection site pain [Unknown]
  - Pancreatic disorder [Unknown]
  - Post procedural pulmonary embolism [Recovered/Resolved]
  - Peripheral swelling [Not Recovered/Not Resolved]

NARRATIVE: CASE EVENT DATE: 201602
